FAERS Safety Report 5815037-5 (Version None)
Quarter: 2008Q3

REPORT INFORMATION
  Report Type: 
  Country: None (occurrence: None)
  Receive Date: 20080718
  Receipt Date: 20080710
  Transmission Date: 20090109
  Serious: Yes (Hospitalization)
  Sender: FDA-Public Use
  Company Number: B0528863A

PATIENT
  Sex: Male

DRUGS (1)
  1. DEROXAT [Suspect]
     Indication: DEPRESSION
     Dosage: 10MG PER DAY
     Route: 048
     Dates: start: 20080101

REACTIONS (5)
  - BIPOLAR I DISORDER [None]
  - EUPHORIC MOOD [None]
  - HYPOMANIA [None]
  - LOGORRHOEA [None]
  - SLEEP DISORDER [None]
